FAERS Safety Report 17911887 (Version 1)
Quarter: 2020Q2

REPORT INFORMATION
  Report Type: Spontaneous
  Country: PT (occurrence: PT)
  Receive Date: 20200618
  Receipt Date: 20200618
  Transmission Date: 20200714
  Serious: Yes (Other)
  Sender: FDA-Public Use
  Company Number: PT-TEVA-2020-PT-1788203

PATIENT
  Age: 61 Year
  Sex: Female
  Weight: 98 kg

DRUGS (8)
  1. PROPOFOL. [Concomitant]
     Active Substance: PROPOFOL
  2. ENOXAPARIN SODIUM. [Concomitant]
     Active Substance: ENOXAPARIN SODIUM
  3. NOREPINEPHRINE. [Concomitant]
     Active Substance: NOREPINEPHRINE
  4. HYDROXYCHLOROQUINE [Suspect]
     Active Substance: HYDROXYCHLOROQUINE
     Indication: COVID-19 PNEUMONIA
     Dosage: 200MG 12 / 12H, UNIT DOSE: 400 MG
     Route: 048
     Dates: start: 20200327, end: 20200403
  5. MIDAZOLAM. [Concomitant]
     Active Substance: MIDAZOLAM
  6. LOPINAVIR, RITONAVIR [Concomitant]
     Active Substance: LOPINAVIR\RITONAVIR
  7. MORPHINE [Concomitant]
     Active Substance: MORPHINE
  8. PARACETAMOL [Concomitant]
     Active Substance: ACETAMINOPHEN

REACTIONS (3)
  - Liver injury [Recovering/Resolving]
  - COVID-19 treatment [Unknown]
  - Rash [Recovered/Resolved]

NARRATIVE: CASE EVENT DATE: 20200327
